FAERS Safety Report 16460055 (Version 2)
Quarter: 2019Q3

REPORT INFORMATION
  Report Type: Report from Study
  Country: FI (occurrence: FI)
  Receive Date: 20190620
  Receipt Date: 20190703
  Transmission Date: 20191004
  Serious: Yes (Hospitalization)
  Sender: FDA-Public Use
  Company Number: FI-WHANIN PHARM. CO., LTD.-2019M1057402

PATIENT
  Sex: Female

DRUGS (18)
  1. LEPONEX [Suspect]
     Active Substance: CLOZAPINE
     Dosage: 450 MILLIGRAM, QD
     Dates: start: 20181231, end: 20190613
  2. ABSENOR                            /00228501/ [Concomitant]
     Dosage: 1200 MILLIGRAM, QD
  3. LEPONEX [Suspect]
     Active Substance: CLOZAPINE
     Dosage: 450 MILLIGRAM, QD
     Dates: start: 20190531
  4. PEGORION [Concomitant]
     Active Substance: POLYETHYLENE GLYCOL 4000
     Indication: PRODUCT USED FOR UNKNOWN INDICATION
     Dosage: 12 GRAM, QD
  5. ZYPREXA [Concomitant]
     Active Substance: OLANZAPINE
     Indication: PRODUCT USED FOR UNKNOWN INDICATION
     Dosage: 10 MILLIGRAM, QD
     Route: 048
     Dates: start: 2019
  6. KALEORID [Concomitant]
     Active Substance: POTASSIUM CHLORIDE
     Indication: PRODUCT USED FOR UNKNOWN INDICATION
     Dosage: 1 GRAM, BID
     Dates: start: 20190607, end: 20190614
  7. TEMESTA                            /00273201/ [Concomitant]
     Active Substance: LORAZEPAM
     Indication: PRODUCT USED FOR UNKNOWN INDICATION
     Dosage: UNK
     Dates: start: 20190506, end: 2019
  8. ZYPREXA [Concomitant]
     Active Substance: OLANZAPINE
     Indication: PRODUCT USED FOR UNKNOWN INDICATION
     Dosage: 10 MILLIGRAM, QD
     Dates: start: 20190501
  9. ABILIFY [Concomitant]
     Active Substance: ARIPIPRAZOLE
     Indication: PRODUCT USED FOR UNKNOWN INDICATION
     Dosage: UNK
     Dates: start: 20190507, end: 20190512
  10. ZYPREXA [Concomitant]
     Active Substance: OLANZAPINE
     Dosage: 10 MILLIGRAM, QD
     Route: 030
  11. ZYPREXA [Concomitant]
     Active Substance: OLANZAPINE
     Dosage: 10 MILLIGRAM
     Route: 048
  12. LEPONEX [Suspect]
     Active Substance: CLOZAPINE
     Indication: SCHIZOAFFECTIVE DISORDER
     Dosage: UNK
     Dates: start: 20181231, end: 20190530
  13. ABSENOR                            /00228501/ [Concomitant]
     Indication: PRODUCT USED FOR UNKNOWN INDICATION
     Dosage: 500 MILLIGRAM, QD
     Dates: start: 20190605
  14. XARELTO [Concomitant]
     Active Substance: RIVAROXABAN
     Indication: PRODUCT USED FOR UNKNOWN INDICATION
     Dosage: 20 MILLIGRAM, QD
     Dates: start: 20181215
  15. ZYPREXA [Concomitant]
     Active Substance: OLANZAPINE
     Indication: PRODUCT USED FOR UNKNOWN INDICATION
     Dosage: 10 MILLIGRAM, QD
     Dates: start: 2019, end: 2019
  16. ABILIFY [Concomitant]
     Active Substance: ARIPIPRAZOLE
     Dosage: 20 MILLIGRAM, QD
     Dates: start: 20190513
  17. HYDREX                             /00022001/ [Concomitant]
     Indication: PRODUCT USED FOR UNKNOWN INDICATION
     Dosage: 12.5 MILLIGRAM, QD
     Dates: start: 20181212, end: 20190607
  18. IMOVANE [Concomitant]
     Active Substance: ZOPICLONE
     Indication: PRODUCT USED FOR UNKNOWN INDICATION
     Dosage: 7.5 MILLIGRAM, QD

REACTIONS (4)
  - Dehydration [Unknown]
  - Hospitalisation [Unknown]
  - Product use in unapproved indication [Recovered/Resolved]
  - Neutrophil count decreased [Recovered/Resolved]

NARRATIVE: CASE EVENT DATE: 20181231
